FAERS Safety Report 9241124 (Version 1)
Quarter: 2013Q1

REPORT INFORMATION
  Report Type: Spontaneous
  Country: US (occurrence: None)
  Receive Date: 20121120
  Receipt Date: 20121120
  Transmission Date: 20140127
  Serious: No
  Sender: FDA-Public Use
  Company Number: 100039156

PATIENT
  Age: 56 Year
  Sex: Male

DRUGS (7)
  1. VIIBRYD (VILAZODONE HYDROCHLORIDE) [Suspect]
     Indication: ANXIETY
     Dates: start: 20120907, end: 20120913
  2. TYLENOL (ACETAMINOPHEN) [Suspect]
     Indication: HEADACHE
     Dates: start: 201209, end: 201209
  3. CLONAZEPAM (CLONAZEPAM) (CLONAZEPAM) [Concomitant]
  4. WARFARIN (WARFARIN) [Concomitant]
  5. VITAMINS NOS [Concomitant]
  6. VITAMIN D (VITAMIN D) [Concomitant]
  7. METAMUCIL (PSYLLIUM) [Concomitant]

REACTIONS (2)
  - Headache [None]
  - Abnormal dreams [None]
